FAERS Safety Report 7370380-6 (Version None)
Quarter: 2011Q1

REPORT INFORMATION
  Report Type: 
  Country: None (occurrence: None)
  Receive Date: 20110323
  Receipt Date: 20110310
  Transmission Date: 20110831
  Serious: Yes (Other)
  Sender: FDA-Public Use
  Company Number: BR-GENENTECH-311715

PATIENT
  Sex: Female
  Weight: 68 kg

DRUGS (11)
  1. RITUXIMAB [Suspect]
     Dosage: 1000 MG, UNK
     Route: 042
     Dates: start: 20100527, end: 20100610
  2. FOLIC ACID [Concomitant]
     Indication: PRODUCT USED FOR UNKNOWN INDICATION
     Dosage: UNK
  3. PREDNISONE [Concomitant]
     Dosage: 10 MG, UNK
     Dates: end: 20091201
  4. PREDNISONE [Concomitant]
     Dosage: 5 MG, PRN
  5. METHOTREXATE [Concomitant]
     Dosage: 6 DF, 1/WEEK
  6. PREDNISONE [Concomitant]
     Indication: PAIN
     Dosage: 20 MG, UNK
     Dates: start: 20050101
  7. RITUXIMAB [Suspect]
     Dosage: UNK
     Route: 042
     Dates: start: 20091005, end: 20091020
  8. METHOTREXATE [Concomitant]
     Indication: PRODUCT USED FOR UNKNOWN INDICATION
     Dosage: 4 DF, 1/WEEK
     Dates: start: 20050101
  9. RITUXIMAB [Suspect]
     Indication: RHEUMATOID ARTHRITIS
     Dosage: UNK
     Route: 042
     Dates: start: 20080101
  10. METHOTREXATE [Concomitant]
     Dosage: 25 MG, 1/WEEK
  11. NAPROXEN [Concomitant]
     Indication: PAIN
     Dosage: 500 MG, PRN

REACTIONS (4)
  - ARTHRALGIA [None]
  - ATROPHY [None]
  - DRUG INEFFECTIVE [None]
  - JOINT RANGE OF MOTION DECREASED [None]
